FAERS Safety Report 10656926 (Version 1)
Quarter: 2014Q4

REPORT INFORMATION
  Report Type: Spontaneous
  Country: GB (occurrence: None)
  Receive Date: 20141215
  Receipt Date: 20141215
  Transmission Date: 20150529
  Serious: Yes (Death)
  Sender: FDA-Public Use
  Company Number: GB-018023

PATIENT

DRUGS (1)
  1. PROPESS (PROPESS) 10 MG (NOT SPECIFIED) [Suspect]
     Active Substance: DINOPROSTONE
     Indication: PRODUCT USED FOR UNKNOWN INDICATION
     Route: 064

REACTIONS (2)
  - Sudden infant death syndrome [None]
  - Maternal drugs affecting foetus [None]

NARRATIVE: CASE EVENT DATE: 2014
